FAERS Safety Report 9402843 (Version 1)
Quarter: 2013Q3

REPORT INFORMATION
  Report Type: Spontaneous
  Country: US (occurrence: None)
  Receive Date: 20130715
  Receipt Date: 20130715
  Transmission Date: 20140515
  Serious: Yes (Disabling)
  Sender: FDA-Public Use
  Company Number: None

PATIENT
  Age: 65 Year
  Sex: Male
  Weight: 102.06 kg

DRUGS (1)
  1. CIPROFLOXACIN HCL 500 MG TADRL 2XDAY FOR 7 DAYS [Suspect]
     Dosage: 1 TABLET  TWICE A DAY
     Dates: start: 20130522, end: 20130526

REACTIONS (2)
  - Tendon injury [None]
  - Tendon rupture [None]
